FAERS Safety Report 13611953 (Version 1)
Quarter: 2017Q2

REPORT INFORMATION
  Report Type: Spontaneous
  Country: MX (occurrence: MX)
  Receive Date: 20170605
  Receipt Date: 20170605
  Transmission Date: 20170830
  Serious: Yes (Hospitalization)
  Sender: FDA-Public Use
  Company Number: MX-TEVA-774165ISR

PATIENT
  Age: 82 Year
  Sex: Male
  Weight: 69 kg

DRUGS (1)
  1. AZILECT [Suspect]
     Active Substance: RASAGILINE MESYLATE
     Dosage: 1 MILLIGRAM DAILY; 1 MG
     Route: 065
     Dates: start: 2014, end: 20170418

REACTIONS (2)
  - Intestinal obstruction [Recovered/Resolved]
  - Drug interaction [Unknown]

NARRATIVE: CASE EVENT DATE: 20170418
